FAERS Safety Report 24403097 (Version 1)
Quarter: 2024Q4

REPORT INFORMATION
  Report Type: Spontaneous
  Country: US (occurrence: US)
  Receive Date: 20241007
  Receipt Date: 20241007
  Transmission Date: 20250115
  Serious: No
  Sender: RANBAXY
  Company Number: US-SUN PHARMACEUTICAL INDUSTRIES LTD-2024R1-443345

PATIENT
  Age: 72 Year

DRUGS (4)
  1. CEQUA [Suspect]
     Active Substance: CYCLOSPORINE
     Indication: Dry eye
     Dosage: UNK
     Route: 047
     Dates: start: 202402, end: 20240416
  2. DULOXETINE [Concomitant]
     Active Substance: DULOXETINE
     Indication: Product used for unknown indication
  3. LETROZOLE [Concomitant]
     Active Substance: LETROZOLE
     Indication: Product used for unknown indication
  4. SYNTHROID [Concomitant]
     Active Substance: LEVOTHYROXINE SODIUM
     Indication: Product used for unknown indication

REACTIONS (5)
  - Eye irritation [Unknown]
  - Ocular hyperaemia [Unknown]
  - Eye pruritus [Unknown]
  - Drug ineffective [Unknown]
  - Therapy cessation [Unknown]

NARRATIVE: CASE EVENT DATE: 20240416
